FAERS Safety Report 17229075 (Version 3)
Quarter: 2020Q1

REPORT INFORMATION
  Report Type: Report from Study
  Country: TR (occurrence: TR)
  Receive Date: 20200103
  Receipt Date: 20200118
  Transmission Date: 20200409
  Serious: Yes (Death, Hospitalization)
  Sender: FDA-Public Use
  Company Number: PHHY2019TR014268

PATIENT
  Age: 68 Year
  Sex: Female
  Weight: 72 kg

DRUGS (3)
  1. LETROZOLE. [Suspect]
     Active Substance: LETROZOLE
     Indication: BREAST CANCER
     Dosage: 2.5 MG, QD
     Route: 048
     Dates: start: 20180621, end: 20190107
  2. ABEMACICLIB [Suspect]
     Active Substance: ABEMACICLIB
     Dosage: 150 MG, BID
     Route: 048
     Dates: start: 20180706, end: 20190107
  3. ABEMACICLIB [Suspect]
     Active Substance: ABEMACICLIB
     Indication: BREAST CANCER
     Dosage: 50 MG, BID
     Route: 048
     Dates: start: 20180621, end: 20180706

REACTIONS (24)
  - Breast cancer [Fatal]
  - Pleural effusion [Recovered/Resolved]
  - Prerenal failure [Unknown]
  - Malignant neoplasm progression [Fatal]
  - Dyspnoea [Recovered/Resolved]
  - Pleural effusion [Recovered/Resolved]
  - Hypophagia [Unknown]
  - Rales [Unknown]
  - Somnolence [Unknown]
  - Inflammatory marker increased [Unknown]
  - Rhonchi [Unknown]
  - Cardiac arrest [Fatal]
  - Anuria [Unknown]
  - Pleural effusion [Unknown]
  - Dyspnoea [Unknown]
  - Dyspnoea [Recovered/Resolved]
  - Sepsis [Unknown]
  - Hypercapnia [Unknown]
  - Hypotension [Recovering/Resolving]
  - Urine output decreased [Unknown]
  - Wheezing [Unknown]
  - Acute kidney injury [Unknown]
  - Blood creatinine increased [Unknown]
  - Orthopnoea [Unknown]

NARRATIVE: CASE EVENT DATE: 20190107
